FAERS Safety Report 12396587 (Version 1)
Quarter: 2016Q2

REPORT INFORMATION
  Report Type: Spontaneous
  Country: DE (occurrence: DE)
  Receive Date: 20160524
  Receipt Date: 20160524
  Transmission Date: 20160815
  Serious: Yes (Other)
  Sender: FDA-Public Use
  Company Number: DE-ROCHE-1600551

PATIENT
  Sex: Female
  Weight: 79 kg

DRUGS (5)
  1. ROACTEMRA [Suspect]
     Active Substance: TOCILIZUMAB
     Indication: RHEUMATOID ARTHRITIS
     Route: 058
     Dates: start: 20150331, end: 20150625
  2. LODOTRA [Concomitant]
     Active Substance: PREDNISONE
     Indication: RHEUMATOID ARTHRITIS
     Route: 048
     Dates: start: 2014
  3. OMEPRAZOL [Concomitant]
     Active Substance: OMEPRAZOLE
     Route: 048
  4. IBUPROFEN. [Concomitant]
     Active Substance: IBUPROFEN
     Indication: RHEUMATOID ARTHRITIS
     Route: 048
     Dates: start: 2014, end: 201509
  5. CALCIMAGON-D3 [Concomitant]
     Active Substance: CALCIUM\CHOLECALCIFEROL
     Indication: RHEUMATOID ARTHRITIS
     Dosage: 1000MG/1000IU
     Route: 048
     Dates: start: 2014

REACTIONS (4)
  - Preterm premature rupture of membranes [Unknown]
  - Postpartum venous thrombosis [Unknown]
  - Exposure during pregnancy [Unknown]
  - Premature baby [Unknown]
